FAERS Safety Report 8250059-9 (Version None)
Quarter: 2012Q1

REPORT INFORMATION
  Report Type: 
  Country: None (occurrence: None)
  Receive Date: 20120328
  Receipt Date: 20120321
  Transmission Date: 20120608
  Serious: No
  Sender: FDA-Public Use
  Company Number: 2012SP015357

PATIENT
  Age: 51 Year
  Sex: Female
  Weight: 91 kg

DRUGS (1)
  1. SAPHRIS [Suspect]
     Indication: PRODUCT USED FOR UNKNOWN INDICATION
     Dosage: UNK

REACTIONS (4)
  - RASH ERYTHEMATOUS [None]
  - BREAST ENLARGEMENT [None]
  - BREAST PAIN [None]
  - GALACTOSTASIS [None]
